FAERS Safety Report 14025928 (Version 1)
Quarter: 2017Q3

REPORT INFORMATION
  Report Type: Spontaneous
  Country: GB (occurrence: GB)
  Receive Date: 20170929
  Receipt Date: 20170929
  Transmission Date: 20171128
  Serious: Yes (Other)
  Sender: FDA-Public Use
  Company Number: GB-DRREDDYS-GER/UKI/17/0093678

PATIENT
  Age: 35 Year
  Sex: Male
  Weight: 94 kg

DRUGS (1)
  1. SILDENAFIL. [Suspect]
     Active Substance: SILDENAFIL
     Indication: ERECTILE DYSFUNCTION
     Route: 048
     Dates: start: 20170804, end: 20170804

REACTIONS (7)
  - Drug ineffective [Recovered/Resolved]
  - Chest discomfort [Recovered/Resolved]
  - Dry mouth [Recovered/Resolved]
  - Thirst [Recovered/Resolved]
  - Flushing [Recovered/Resolved]
  - Insomnia [Recovered/Resolved]
  - Cough [Recovered/Resolved]

NARRATIVE: CASE EVENT DATE: 20170804
